FAERS Safety Report 26066658 (Version 1)
Quarter: 2025Q4

REPORT INFORMATION
  Report Type: Spontaneous
  Country: US (occurrence: US)
  Receive Date: 20251119
  Receipt Date: 20251119
  Transmission Date: 20260118
  Serious: No
  Sender: NOVO NORDISK
  Company Number: US-NOVOPROD-1517984

PATIENT
  Sex: Male

DRUGS (1)
  1. NOVOLOG [Suspect]
     Active Substance: INSULIN ASPART
     Indication: Type 1 diabetes mellitus
     Dosage: SLIDING SCALE 40-50 UNITS PER DAY SOMETIMES LESS/MORE
     Route: 058
     Dates: start: 2013

REACTIONS (3)
  - Diabetic retinopathy [Unknown]
  - Product storage error [Unknown]
  - Wrong technique in device usage process [Unknown]
